FAERS Safety Report 9731778 (Version 1)
Quarter: 2013Q4

REPORT INFORMATION
  Report Type: Report from Study
  Country: TW (occurrence: TW)
  Receive Date: 20131204
  Receipt Date: 20131204
  Transmission Date: 20140711
  Serious: No
  Sender: FDA-Public Use
  Company Number: PHHY2013TW139341

PATIENT
  Age: 77 Year
  Sex: Male

DRUGS (14)
  1. AMN107 [Suspect]
  2. ATORVASTATIN [Concomitant]
     Indication: HYPERLIPIDAEMIA
     Dates: start: 20131101
  3. DIFLUCORTOLONE [Concomitant]
     Indication: PROPHYLAXIS
     Dates: start: 20121127
  4. DIFLUCORTOLONE VALERATE [Concomitant]
     Indication: PROPHYLAXIS
     Dates: start: 20111227, end: 20120124
  5. DIFLUCORTOLONE VALERATE [Concomitant]
     Dates: start: 20120214, end: 20120221
  6. DIFLUCORTOLONE VALERATE [Concomitant]
     Dates: start: 20120330, end: 20120416
  7. DIFLUCORTOLONE VALERATE [Concomitant]
     Dates: start: 20120417, end: 20120424
  8. DIFLUCORTOLONE VALERATE [Concomitant]
     Dates: start: 20120515, end: 20120522
  9. DIFLUCORTOLONE VALERATE [Concomitant]
     Dates: start: 20120710, end: 20120717
  10. DIFLUCORTOLONE VALERATE [Concomitant]
     Dates: start: 20120904, end: 20120911
  11. DIFLUCORTOLONE VALERATE [Concomitant]
     Dates: start: 20121030, end: 20121106
  12. NICORANDIL [Concomitant]
     Indication: PERIPHERAL VASCULAR DISORDER
     Dates: start: 20120222, end: 20120418
  13. NICORANDIL [Concomitant]
     Indication: MYOCARDIAL ISCHAEMIA
     Dates: start: 20120613, end: 20120711
  14. NICORANDIL [Concomitant]
     Dates: start: 20121006

REACTIONS (2)
  - Skin lesion [Unknown]
  - Pruritus [Unknown]
